FAERS Safety Report 9853330 (Version 1)
Quarter: 2013Q4

REPORT INFORMATION
  Report Type: Spontaneous
  Country: US (occurrence: None)
  Receive Date: 20131226
  Receipt Date: 20131226
  Transmission Date: 20140711
  Serious: Yes (Other)
  Sender: FDA-Public Use
  Company Number: PHHY2013US084553

PATIENT
  Age: 55 Year
  Sex: Male

DRUGS (5)
  1. GILENYA (FINGOLIMOD) CAPSULE, 0.5MG [Suspect]
     Indication: MULTIPLE SCLEROSIS
     Route: 048
     Dates: start: 20120524, end: 20120620
  2. TYSABRI (NATALIZUMAB) [Concomitant]
  3. METHOTREXATE (METHOTREXATE) [Concomitant]
  4. PRAVASTATIN (PRAVASTATIN) [Concomitant]
  5. METFORMIN (METFORMIN) [Concomitant]

REACTIONS (4)
  - Cystoid macular oedema [None]
  - Visual impairment [None]
  - Visual field defect [None]
  - Vision blurred [None]
